FAERS Safety Report 8472493-4 (Version None)
Quarter: 2012Q2

REPORT INFORMATION
  Report Type: 
  Country: None (occurrence: None)
  Receive Date: 20120627
  Receipt Date: 20120209
  Transmission Date: 20120825
  Serious: No
  Sender: FDA-Public Use
  Company Number: US-AMGEN-USASP2012009147

PATIENT
  Age: 96 Year
  Sex: Male

DRUGS (2)
  1. PROCRIT [Suspect]
     Indication: PRODUCT USED FOR UNKNOWN INDICATION
     Dosage: 2000 IU, UNK
  2. PROCRIT [Suspect]
     Dosage: 4000 IU, UNK

REACTIONS (1)
  - EXPIRED DRUG ADMINISTERED [None]
